FAERS Safety Report 5833302-2 (Version None)
Quarter: 2008Q3

REPORT INFORMATION
  Report Type: 
  Country: None (occurrence: None)
  Receive Date: 20080805
  Receipt Date: 20080726
  Transmission Date: 20090109
  Serious: Yes (Hospitalization, Other)
  Sender: FDA-Public Use
  Company Number: GB-BAYER-200823356GPV

PATIENT

DRUGS (2)
  1. SORAFENIB [Suspect]
     Indication: THYROID CANCER
     Route: 065
     Dates: start: 20070501
  2. SORAFENIB [Suspect]
     Route: 065

REACTIONS (9)
  - ALOPECIA [None]
  - DIARRHOEA [None]
  - HYPERTENSION [None]
  - HYPOCALCAEMIA [None]
  - INFECTION [None]
  - NAUSEA [None]
  - PALMAR-PLANTAR ERYTHRODYSAESTHESIA SYNDROME [None]
  - PYREXIA [None]
  - SKIN TOXICITY [None]
